FAERS Safety Report 8334916-0 (Version None)
Quarter: 2012Q2

REPORT INFORMATION
  Report Type: 
  Country: None (occurrence: None)
  Receive Date: 20120503
  Receipt Date: 20100303
  Transmission Date: 20120825
  Serious: No
  Sender: FDA-Public Use
  Company Number: US-TEVA-2010001270

PATIENT
  Sex: Female
  Weight: 52.21 kg

DRUGS (6)
  1. METOPROLOL TARTRATE [Concomitant]
     Dosage: 25 MILLIGRAM;
     Dates: start: 20090101
  2. MULTI-VITAMINS [Concomitant]
  3. NUVIGIL [Suspect]
     Indication: FATIGUE
     Dosage: 25 MILLIGRAM;
     Route: 048
     Dates: start: 20100302, end: 20100302
  4. GABAPENTIN [Concomitant]
     Dates: start: 20020101
  5. NUVIGIL [Suspect]
     Dosage: 100 MILLIGRAM;
     Route: 048
     Dates: start: 20100303
  6. CLONAZEPAM [Concomitant]
     Dosage: 1 MILLIGRAM;

REACTIONS (4)
  - INTENTIONAL DRUG MISUSE [None]
  - HYPOTENSION [None]
  - DRUG INEFFECTIVE FOR UNAPPROVED INDICATION [None]
  - HEADACHE [None]
